FAERS Safety Report 21053920 (Version 4)
Quarter: 2022Q3

REPORT INFORMATION
  Report Type: Report from Study
  Country: US (occurrence: None)
  Receive Date: 20220707
  Receipt Date: 20220829
  Transmission Date: 20221027
  Serious: Yes (Other)
  Sender: FDA-Public Use
  Company Number: US-ROCHE-3131888

PATIENT
  Age: 75 Year
  Sex: Female
  Weight: 82.7 kg

DRUGS (5)
  1. MOSUNETUZUMAB [Suspect]
     Active Substance: MOSUNETUZUMAB
     Indication: B-cell lymphoma
     Dosage: ON 14/JUL/2022, SHE RECEIVED MOST RECENT DOSE 45 MG OF STUDY DRUG MOSUNETUZUMAB PRIOR TO SAE.
     Route: 058
     Dates: start: 20220124
  2. POLATUZUMAB VEDOTIN [Suspect]
     Active Substance: POLATUZUMAB VEDOTIN
     Indication: B-cell lymphoma
     Dosage: ON 02/JUN/2022, SHE RECEIVED MOST RECENT DOSE 120 MG OF STUDY DRUG POLATUZUMAB VEDOTIN PRIOR TO SAE.
     Route: 042
     Dates: start: 20220124
  3. TOCILIZUMAB [Suspect]
     Active Substance: TOCILIZUMAB
     Indication: B-cell lymphoma
     Route: 042
     Dates: start: 20220126
  4. ALLOPURINOL [Concomitant]
     Active Substance: ALLOPURINOL
     Route: 048
     Dates: start: 20180416
  5. DEXAMETHASONE [Concomitant]
     Active Substance: DEXAMETHASONE
     Route: 042
     Dates: start: 20220124

REACTIONS (2)
  - Pain in extremity [Not Recovered/Not Resolved]
  - Neoplasm [Not Recovered/Not Resolved]

NARRATIVE: CASE EVENT DATE: 20220630
